FAERS Safety Report 5896989-4 (Version None)
Quarter: 2008Q3

REPORT INFORMATION
  Report Type: 
  Country: None (occurrence: None)
  Receive Date: 20080924
  Receipt Date: 20080213
  Transmission Date: 20090109
  Serious: Yes (Other)
  Sender: FDA-Public Use
  Company Number: US-ASTRAZENECA-2008UW02639

PATIENT
  Age: 73 Year
  Sex: Female
  Weight: 54.4 kg

DRUGS (21)
  1. SEROQUEL [Suspect]
     Indication: BIPOLAR DISORDER
     Route: 048
     Dates: start: 20080129, end: 20080131
  2. SEROQUEL [Suspect]
     Route: 048
     Dates: start: 20080207
  3. PAMELOR [Concomitant]
  4. FUROSEMIDE [Concomitant]
  5. HYDRALAZINE HCL [Concomitant]
  6. NIFEDIPINE [Concomitant]
  7. ASCORBIC ACID [Concomitant]
  8. ONE A DAY [Concomitant]
  9. ASPIRIN [Concomitant]
  10. TYLENOL (CAPLET) [Concomitant]
  11. PRAVASTATIN [Concomitant]
  12. ACIPHEX [Concomitant]
  13. AMBIEN CR [Concomitant]
  14. VITAMIN E [Concomitant]
  15. CALCIUM GLUCONATE [Concomitant]
  16. IRON [Concomitant]
  17. LASIX [Concomitant]
  18. INSULIN [Concomitant]
  19. HUMALOG [Concomitant]
  20. COREG [Concomitant]
  21. CHOLESTATIN [Concomitant]

REACTIONS (7)
  - BLOOD GLUCOSE INCREASED [None]
  - DIZZINESS [None]
  - DRY MOUTH [None]
  - DYSARTHRIA [None]
  - OEDEMA [None]
  - SOMNOLENCE [None]
  - WEIGHT INCREASED [None]
